FAERS Safety Report 19546481 (Version 2)
Quarter: 2021Q3

REPORT INFORMATION
  Report Type: Spontaneous
  Country: CO (occurrence: CO)
  Receive Date: 20210714
  Receipt Date: 20210824
  Transmission Date: 20211014
  Serious: Yes (Hospitalization)
  Sender: FDA-Public Use
  Company Number: CO-AMGEN-COLSP2021106971

PATIENT
  Age: 64 Year
  Sex: Female

DRUGS (1)
  1. ENBREL [Suspect]
     Active Substance: ETANERCEPT
     Indication: RHEUMATOID ARTHRITIS
     Dosage: 50 MG
     Route: 058

REACTIONS (4)
  - Chronic gastritis [Unknown]
  - Vomiting [Unknown]
  - Diarrhoea [Unknown]
  - Colitis [Unknown]

NARRATIVE: CASE EVENT DATE: 202004
